FAERS Safety Report 19815435 (Version 2)
Quarter: 2022Q2

REPORT INFORMATION
  Report Type: Spontaneous
  Country: US (occurrence: None)
  Receive Date: 20210910
  Receipt Date: 20220422
  Transmission Date: 20220721
  Serious: Yes (Other)
  Sender: FDA-Public Use
  Company Number: 2021A710422

PATIENT
  Age: 74 Year
  Sex: Female
  Weight: 104.3 kg

DRUGS (55)
  1. NEXIUM [Suspect]
     Active Substance: ESOMEPRAZOLE MAGNESIUM
     Indication: Gastrooesophageal reflux disease
     Route: 048
     Dates: start: 2001, end: 2018
  2. NEXIUM [Suspect]
     Active Substance: ESOMEPRAZOLE MAGNESIUM
     Indication: Gastrooesophageal reflux disease
     Route: 048
     Dates: start: 1998, end: 2018
  3. NEXIUM [Suspect]
     Active Substance: ESOMEPRAZOLE MAGNESIUM
     Indication: Gastrooesophageal reflux disease
     Dosage: GENERIC
     Route: 065
     Dates: start: 1998, end: 2018
  4. PRILOSEC [Suspect]
     Active Substance: OMEPRAZOLE MAGNESIUM
     Indication: Gastrooesophageal reflux disease
     Route: 048
     Dates: start: 1998, end: 2018
  5. PRILOSEC [Suspect]
     Active Substance: OMEPRAZOLE MAGNESIUM
     Indication: Gastrooesophageal reflux disease
     Route: 048
     Dates: start: 1998, end: 2018
  6. PREVACID [Suspect]
     Active Substance: LANSOPRAZOLE
     Indication: Gastrooesophageal reflux disease
     Route: 065
     Dates: start: 1998, end: 2018
  7. FUROSEMIDE [Concomitant]
     Active Substance: FUROSEMIDE
     Indication: Fluid retention
     Dates: start: 20180320
  8. FUROSEMIDE [Concomitant]
     Active Substance: FUROSEMIDE
     Indication: Fluid retention
     Dates: start: 20120904
  9. FUROSEMIDE [Concomitant]
     Active Substance: FUROSEMIDE
     Indication: Fluid retention
     Dates: start: 20120803
  10. FUROSEMIDE [Concomitant]
     Active Substance: FUROSEMIDE
     Indication: Fluid retention
     Dates: start: 20140314
  11. FUROSEMIDE [Concomitant]
     Active Substance: FUROSEMIDE
     Indication: Fluid retention
     Dates: start: 20120111
  12. FUROSEMIDE [Concomitant]
     Active Substance: FUROSEMIDE
     Indication: Fluid retention
     Dates: start: 20111212
  13. LIPITOR [Concomitant]
     Active Substance: ATORVASTATIN CALCIUM
     Indication: Blood cholesterol increased
     Dates: start: 20111213
  14. PLAVIX [Concomitant]
     Active Substance: CLOPIDOGREL BISULFATE
     Indication: Diuretic therapy
     Dates: start: 20111115
  15. LEVOFLOXACIN [Concomitant]
     Active Substance: LEVOFLOXACIN
     Indication: Infection
     Dates: start: 20110104
  16. ASPIRIN [Concomitant]
     Active Substance: ASPIRIN
     Dates: start: 20171101
  17. VITAMIN D2 [Concomitant]
     Active Substance: ERGOCALCIFEROL
     Dates: start: 20171101
  18. LIDOCAINE [Concomitant]
     Active Substance: LIDOCAINE
  19. METOPROLOL SUCCINATE [Concomitant]
     Active Substance: METOPROLOL SUCCINATE
  20. PREDNISONE [Concomitant]
     Active Substance: PREDNISONE
  21. POLYMYXIN B/TRIMETHOPRIM [Concomitant]
  22. AZITHROMYCIN [Concomitant]
     Active Substance: AZITHROMYCIN
  23. TOBRAMYCIN [Concomitant]
     Active Substance: TOBRAMYCIN
  24. DIAZEPAM [Concomitant]
     Active Substance: DIAZEPAM
  25. BENZONATATE [Concomitant]
     Active Substance: BENZONATATE
  26. DOXYCYCLINE [Concomitant]
     Active Substance: DOXYCYCLINE
  27. ADACEL TDAP [Concomitant]
     Active Substance: TETANUS TOXOID, REDUCED DIPHTHERIA TOXOID AND ACELLULAR PERTUSSIS VACCINE ADSORBED, TDAP
  28. MELOXICAM [Concomitant]
     Active Substance: MELOXICAM
  29. ZETIA [Concomitant]
     Active Substance: EZETIMIBE
  30. MONTELUKAST [Concomitant]
     Active Substance: MONTELUKAST SODIUM
  31. PRAVASTATIN [Concomitant]
     Active Substance: PRAVASTATIN
  32. TRAMADOL [Concomitant]
     Active Substance: TRAMADOL
  33. IBUPROFEN [Concomitant]
     Active Substance: IBUPROFEN
  34. AVELOX [Concomitant]
     Active Substance: MOXIFLOXACIN HYDROCHLORIDE
  35. METHYLPREDNISOLONE [Concomitant]
     Active Substance: METHYLPREDNISOLONE
  36. FLOVENT [Concomitant]
     Active Substance: FLUTICASONE PROPIONATE
  37. NYSTATIN [Concomitant]
     Active Substance: NYSTATIN
  38. INDOMETHACIN [Concomitant]
     Active Substance: INDOMETHACIN
  39. NAPROXEN [Concomitant]
     Active Substance: NAPROXEN
  40. BYETTA [Concomitant]
     Active Substance: EXENATIDE
  41. ACETAMINOPHEN\HYDROCODONE BITARTRATE [Concomitant]
     Active Substance: ACETAMINOPHEN\HYDROCODONE BITARTRATE
  42. POTASSIUM [Concomitant]
     Active Substance: POTASSIUM
  43. TAMIFLU [Concomitant]
     Active Substance: OSELTAMIVIR PHOSPHATE
  44. ALPRAZOLAM [Concomitant]
     Active Substance: ALPRAZOLAM
  45. KETOCONAZOLE [Concomitant]
     Active Substance: KETOCONAZOLE
  46. TRICOR [Concomitant]
     Active Substance: FENOFIBRATE
  47. SINGULAIR [Concomitant]
     Active Substance: MONTELUKAST SODIUM
  48. NOVOLOG [Concomitant]
     Active Substance: INSULIN ASPART
  49. MAGNESIUM OXIDE [Concomitant]
     Active Substance: MAGNESIUM OXIDE
  50. CIPRODEX [Concomitant]
     Active Substance: CIPROFLOXACIN HYDROCHLORIDE\DEXAMETHASONE
  51. DIOVAN [Concomitant]
     Active Substance: VALSARTAN
  52. BIAXIN [Concomitant]
     Active Substance: CLARITHROMYCIN
  53. DUONEB [Concomitant]
     Active Substance: ALBUTEROL SULFATE\IPRATROPIUM BROMIDE
  54. COZAAR [Concomitant]
     Active Substance: LOSARTAN POTASSIUM
  55. FLEXERIL [Concomitant]
     Active Substance: CYCLOBENZAPRINE HYDROCHLORIDE

REACTIONS (4)
  - Acute kidney injury [Unknown]
  - Chronic kidney disease [Unknown]
  - Nephrogenic anaemia [Unknown]
  - Chronic kidney disease-mineral and bone disorder [Unknown]

NARRATIVE: CASE EVENT DATE: 20180101
